FAERS Safety Report 9295628 (Version 1)
Quarter: 2013Q1

REPORT INFORMATION
  Report Type: Spontaneous
  Country: US (occurrence: None)
  Receive Date: 20130107
  Receipt Date: 20130107
  Transmission Date: 20140127
  Serious: Yes (Other)
  Sender: FDA-Public Use
  Company Number: PHHY2012US100845

PATIENT
  Age: 53 Year
  Sex: Female
  Weight: 68 kg

DRUGS (3)
  1. GILENYA [Suspect]
     Indication: MULTIPLE SCLEROSIS
     Route: 048
     Dates: start: 20110604
  2. SERTRALINE (SERTRALINE) [Concomitant]
  3. AMPHETAMINE (AMPHETAMINE) [Concomitant]

REACTIONS (9)
  - Bronchitis [None]
  - Malaise [None]
  - Sinus congestion [None]
  - Oropharyngeal pain [None]
  - Cough [None]
  - Chest discomfort [None]
  - Bronchospasm [None]
  - Wheezing [None]
  - Pyrexia [None]
